FAERS Safety Report 4777495-7 (Version None)
Quarter: 2005Q3

REPORT INFORMATION
  Report Type: 
  Country: None (occurrence: None)
  Receive Date: 20050921
  Receipt Date: 20050916
  Transmission Date: 20060218
  Serious: Yes (Hospitalization)
  Sender: FDA-Public Use
  Company Number: 005653

PATIENT
  Age: 50 Year
  Sex: Female

DRUGS (1)
  1. NORDETTE-28 [Suspect]
     Dosage: ORAL
     Route: 048
     Dates: end: 20050422

REACTIONS (3)
  - DEEP VEIN THROMBOSIS [None]
  - MICROCYTIC ANAEMIA [None]
  - PULMONARY EMBOLISM [None]
